FAERS Safety Report 4295175-1 (Version None)
Quarter: 2004Q1

REPORT INFORMATION
  Report Type: 
  Country: None (occurrence: None)
  Receive Date: 20040216
  Receipt Date: 20040205
  Transmission Date: 20041129
  Serious: Yes (Hospitalization)
  Sender: FDA-Public Use
  Company Number: PHNU2004DE00812

PATIENT
  Age: 76 Year
  Sex: Male

DRUGS (5)
  1. ZOMETA [Suspect]
     Indication: PROSTATE CANCER METASTATIC
     Dosage: 4 MG EVERY 4 WEEKS
     Route: 042
     Dates: start: 20031101
  2. CLEXANE [Suspect]
     Indication: DEEP VEIN THROMBOSIS
     Dosage: 80 MG/DAY
     Route: 058
     Dates: start: 20040109, end: 20040130
  3. METOCLOPRAMIDE [Concomitant]
  4. PROSTICA [Concomitant]
  5. AMITRIPTYLINE [Concomitant]

REACTIONS (4)
  - DEEP VEIN THROMBOSIS [None]
  - HEPARIN-INDUCED THROMBOCYTOPENIA [None]
  - PLATELET COUNT DECREASED [None]
  - PROTHROMBIN TIME PROLONGED [None]
